FAERS Safety Report 9379275 (Version 1)
Quarter: 2013Q3

REPORT INFORMATION
  Report Type: Report from Study
  Country: IT (occurrence: IT)
  Receive Date: 20130702
  Receipt Date: 20130702
  Transmission Date: 20140515
  Serious: Yes (Death)
  Sender: FDA-Public Use
  Company Number: IT-MILLENNIUM PHARMACEUTICALS, INC.-2013-05122

PATIENT
  Sex: 0

DRUGS (3)
  1. VELCADE [Suspect]
     Indication: PLASMA CELL MYELOMA
     Dosage: 2.04 MG, UNK
     Route: 042
     Dates: start: 20130510, end: 20130515
  2. CYCLOPHOSPHAMIDE [Suspect]
     Indication: PLASMA CELL MYELOMA
     Dosage: 785 MG, UNK
     Route: 042
     Dates: start: 20130510, end: 20130515
  3. DEXAMETHASONE [Suspect]
     Indication: PLASMA CELL MYELOMA
     Dosage: 40 MG, UNK
     Route: 048
     Dates: start: 20130510, end: 20130515

REACTIONS (1)
  - Death [Fatal]
